FAERS Safety Report 6992177-9 (Version None)
Quarter: 2010Q3

REPORT INFORMATION
  Report Type: 
  Country: None (occurrence: None)
  Receive Date: 20100917
  Receipt Date: 20100810
  Transmission Date: 20110219
  Serious: No
  Sender: FDA-Public Use
  Company Number: A0872337A

PATIENT
  Age: 72 Year
  Sex: Male

DRUGS (2)
  1. PROMACTA [Suspect]
     Dosage: 25MG THREE TIMES PER DAY
     Route: 048
     Dates: start: 20100201
  2. UNKNOWN [Concomitant]

REACTIONS (2)
  - PRURITUS [None]
  - RASH [None]
